FAERS Safety Report 9704397 (Version 1)
Quarter: 2013Q4

REPORT INFORMATION
  Report Type: Spontaneous
  Country: US (occurrence: US)
  Receive Date: 20131122
  Receipt Date: 20131122
  Transmission Date: 20140711
  Serious: No
  Sender: FDA-Public Use
  Company Number: US-MYLANLABS-2013S1011812

PATIENT
  Age: 22 Year
  Sex: Male

DRUGS (1)
  1. CLONAZEPAM TABLETS, USP [Suspect]
     Indication: PANIC ATTACK
     Route: 048
     Dates: start: 20130429, end: 20130529

REACTIONS (3)
  - Drug effect decreased [Not Recovered/Not Resolved]
  - Panic attack [Not Recovered/Not Resolved]
  - Wrong technique in drug usage process [Recovered/Resolved]
